FAERS Safety Report 20753252 (Version 1)
Quarter: 2022Q2

REPORT INFORMATION
  Report Type: Spontaneous
  Country: US (occurrence: None)
  Receive Date: 20220426
  Receipt Date: 20220426
  Transmission Date: 20220721
  Serious: No
  Sender: FDA-Public Use
  Company Number: US-ROCHE-2782278

PATIENT
  Sex: Male

DRUGS (4)
  1. ESBRIET [Suspect]
     Active Substance: PIRFENIDONE
     Indication: Idiopathic pulmonary fibrosis
     Dosage: ONE 267 MG TABLET THREE TIMES A DAY ;ONGOING: NO
     Route: 048
     Dates: start: 202102
  2. ESBRIET [Suspect]
     Active Substance: PIRFENIDONE
     Dosage: NO
     Route: 048
  3. ESBRIET [Suspect]
     Active Substance: PIRFENIDONE
     Dosage: YES
     Route: 048
  4. OXYGEN [Concomitant]
     Active Substance: OXYGEN
     Indication: Idiopathic pulmonary fibrosis
     Dosage: CONTINUOUSLY ;ONGOING: YES

REACTIONS (4)
  - Erythema [Recovered/Resolved]
  - Flatulence [Not Recovered/Not Resolved]
  - Gastrooesophageal reflux disease [Recovered/Resolved]
  - Off label use [Unknown]
